FAERS Safety Report 20151154 (Version 1)
Quarter: 2021Q4

REPORT INFORMATION
  Report Type: Spontaneous
  Country: US (occurrence: US)
  Receive Date: 20211206
  Receipt Date: 20211206
  Transmission Date: 20220303
  Serious: Yes (Other)
  Sender: FDA-Public Use
  Company Number: US-ELI_LILLY_AND_COMPANY-US202111011780

PATIENT
  Sex: Male

DRUGS (3)
  1. ZYPREXA ZYDIS [Suspect]
     Active Substance: OLANZAPINE
     Indication: Insomnia
     Dosage: UNK UNK, UNKNOWN
     Route: 065
     Dates: start: 20211115
  2. ZYPREXA [Suspect]
     Active Substance: OLANZAPINE
     Indication: Insomnia
     Dosage: UNK UNK, UNKNOWN
     Route: 042
     Dates: start: 20211116
  3. VANCOMYCIN HYDROCHLORIDE [Suspect]
     Active Substance: VANCOMYCIN HYDROCHLORIDE
     Indication: Product used for unknown indication
     Dosage: UNK UNK, UNKNOWN
     Route: 065

REACTIONS (5)
  - Dementia [Unknown]
  - Abnormal behaviour [Unknown]
  - Antibiotic level above therapeutic [Unknown]
  - Product administered at inappropriate site [Unknown]
  - Off label use [Unknown]

NARRATIVE: CASE EVENT DATE: 20210101
